FAERS Safety Report 21262099 (Version 3)
Quarter: 2022Q3

REPORT INFORMATION
  Report Type: Report from Study
  Country: IL (occurrence: IL)
  Receive Date: 20220827
  Receipt Date: 20220913
  Transmission Date: 20221026
  Serious: Yes (Hospitalization)
  Sender: FDA-Public Use
  Company Number: IL-ABBVIE-22K-082-4386626-00

PATIENT
  Sex: Female

DRUGS (8)
  1. CARBIDOPA\LEVODOPA [Suspect]
     Active Substance: CARBIDOPA\LEVODOPA
     Indication: Parkinson^s disease
     Dosage: MORNING DOSAGE(ML) 8.0, CONTINUOUS DOSAGE (ML/H) 2.2, EXTRA DOSAGE (ML) 1.0
     Route: 050
     Dates: start: 20220426, end: 2022
  2. CARBIDOPA\LEVODOPA [Suspect]
     Active Substance: CARBIDOPA\LEVODOPA
     Dosage: THERAPY DURATION HOURS REMAINS AT 16 TOOK EXTRA DOSE 1-2 TIMES PER DAY ON AVERAGE.
     Route: 050
     Dates: start: 2022, end: 2022
  3. CARBIDOPA\LEVODOPA [Suspect]
     Active Substance: CARBIDOPA\LEVODOPA
     Dosage: CONTINUOUS DOSE WAS REDUCED FROM 2.2 TO 2
     Route: 050
     Dates: start: 2022, end: 2022
  4. CARBIDOPA\LEVODOPA [Suspect]
     Active Substance: CARBIDOPA\LEVODOPA
     Route: 050
     Dates: start: 20220426, end: 20220516
  5. CARBIDOPA\LEVODOPA [Suspect]
     Active Substance: CARBIDOPA\LEVODOPA
     Dosage: MD(ML) 8.0, CD (ML/H) 2.0, ED (ML) 1.0,THERAPY DURATION (HRS) REMAINS AT 16
     Route: 050
     Dates: start: 20220516, end: 20220606
  6. CARBIDOPA\LEVODOPA [Suspect]
     Active Substance: CARBIDOPA\LEVODOPA
     Dosage: MORNING DOSAGE(ML) 6.0, CONTINUOUS DOSAGE (ML/H) 1.8, EXTRA DOSE (ML) 1.5
     Route: 050
     Dates: start: 20220606, end: 20220809
  7. CARBIDOPA\LEVODOPA [Suspect]
     Active Substance: CARBIDOPA\LEVODOPA
     Dosage: MORNING DOSAGE(ML) 5.5 , CONTINUOUS DOSAGE (ML/H) 1.8, EXTRA DOSE (ML) 1.5
     Route: 050
     Dates: start: 20220809
  8. PRAMIPEXOLE [Concomitant]
     Active Substance: PRAMIPEXOLE
     Indication: Product used for unknown indication

REACTIONS (7)
  - Rectal haemorrhage [Unknown]
  - Rectal prolapse [Unknown]
  - Infrequent bowel movements [Unknown]
  - Incorrect route of product administration [Unknown]
  - On and off phenomenon [Unknown]
  - Dyskinesia [Unknown]
  - Device dislocation [Unknown]

NARRATIVE: CASE EVENT DATE: 20220101
